FAERS Safety Report 12646027 (Version 1)
Quarter: 2016Q3

REPORT INFORMATION
  Report Type: Report from Study
  Country: ZA (occurrence: ZA)
  Receive Date: 20160811
  Receipt Date: 20160811
  Transmission Date: 20161109
  Serious: Yes (Death, Hospitalization, Other)
  Sender: FDA-Public Use
  Company Number: ZA-GILEAD-2016-0227011

PATIENT
  Age: 38 Year
  Sex: Male
  Weight: 73.8 kg

DRUGS (6)
  1. AMPHOTERICIN B, LIPOSOME [Suspect]
     Active Substance: AMPHOTERICIN B
     Indication: MENINGITIS CRYPTOCOCCAL
     Dosage: 700 MG, QD
     Route: 042
     Dates: start: 20160708
  2. TENOFOVIR DISOPROXIL FUMARATE. [Suspect]
     Active Substance: TENOFOVIR DISOPROXIL FUMARATE
     Indication: ANTIRETROVIRAL THERAPY
     Route: 048
  3. FLUCONAZOLE. [Suspect]
     Active Substance: FLUCONAZOLE
     Indication: MENINGITIS CRYPTOCOCCAL
     Dosage: UNK, QD
     Route: 048
     Dates: start: 20160708
  4. ACTRAPID INSULIN NOVO [Concomitant]
  5. EMTRICITABINE/TENOFOVIR DISOPROXIL FUMARATE [Suspect]
     Active Substance: EMTRICITABINE\TENOFOVIR DISOPROXIL
     Indication: ANTIRETROVIRAL THERAPY
     Route: 065
  6. ATAZANAVIR W/RITONAVIR [Concomitant]
     Active Substance: ATAZANAVIR\RITONAVIR
     Indication: ANTIRETROVIRAL THERAPY

REACTIONS (1)
  - Meningitis cryptococcal [Fatal]

NARRATIVE: CASE EVENT DATE: 20160712
